FAERS Safety Report 8516289-3 (Version None)
Quarter: 2012Q3

REPORT INFORMATION
  Report Type: 
  Country: None (occurrence: None)
  Receive Date: 20120717
  Receipt Date: 20120329
  Transmission Date: 20120928
  Serious: Yes (Other)
  Sender: FDA-Public Use
  Company Number: PHHY2012BR061052

PATIENT

DRUGS (3)
  1. RAPAMUNE [Concomitant]
     Indication: IMMUNOSUPPRESSION
  2. PREDNISONE [Concomitant]
     Indication: IMMUNOSUPPRESSION
  3. MYFORTIC [Suspect]

REACTIONS (1)
  - DEPRESSION [None]
